FAERS Safety Report 8065910-5 (Version None)
Quarter: 2012Q1

REPORT INFORMATION
  Report Type: 
  Country: None (occurrence: None)
  Receive Date: 20120124
  Receipt Date: 20120112
  Transmission Date: 20120608
  Serious: Yes (Hospitalization, Other)
  Sender: FDA-Public Use
  Company Number: FR-ELI_LILLY_AND_COMPANY-FR201201003348

PATIENT
  Age: 30 Year
  Sex: Female

DRUGS (11)
  1. DUPHALAC [Concomitant]
     Dosage: UNK
     Dates: start: 20111106
  2. XANAX [Concomitant]
     Dosage: 0.5 MG, UNK
     Route: 048
     Dates: start: 20111011, end: 20111201
  3. ACETAMINOPHEN [Concomitant]
     Dosage: UNK
     Dates: start: 20110919
  4. RISPERDAL [Concomitant]
     Dosage: 2 MG, UNK
     Route: 048
     Dates: start: 20110918, end: 20110921
  5. SEROQUEL [Concomitant]
     Dosage: UNK
     Route: 048
     Dates: start: 20111020, end: 20111214
  6. LAMICTAL [Concomitant]
     Dosage: 100 MG, UNK
     Route: 048
     Dates: start: 20110918
  7. STABLON [Concomitant]
     Dosage: 12.5 MG, UNK
     Route: 048
     Dates: start: 20110918
  8. TERCIAN [Concomitant]
     Dosage: UNK
     Dates: start: 20111116
  9. NORFLOXACIN [Concomitant]
     Dosage: UNK
     Dates: start: 20111018, end: 20111021
  10. ZYPREXA [Suspect]
     Dosage: UNK
     Dates: start: 20110920, end: 20111004
  11. TRIMEPRAZINE TARTRATE [Concomitant]
     Dosage: 5 MG, UNK
     Route: 048
     Dates: start: 20111020

REACTIONS (1)
  - COLITIS ISCHAEMIC [None]
